FAERS Safety Report 5229137-4 (Version None)
Quarter: 2007Q1

REPORT INFORMATION
  Report Type: 
  Country: None (occurrence: None)
  Receive Date: 20061201
  Receipt Date: 20060911
  Transmission Date: 20070707
  Serious: No
  Sender: FDA-Public Use
  Company Number: US200609002921

PATIENT
  Sex: Male

DRUGS (4)
  1. CYMBALTA [Suspect]
     Dosage: 60 MG
     Dates: start: 20060801, end: 20060908
  2. TRAMADOL HCL [Concomitant]
  3. VICODIN [Concomitant]
  4. NEURONTIN [Concomitant]

REACTIONS (1)
  - ANGER [None]
